FAERS Safety Report 14737830 (Version 1)
Quarter: 2018Q2

REPORT INFORMATION
  Report Type: Other
  Country: US (occurrence: US)
  Receive Date: 20180409
  Receipt Date: 20180409
  Transmission Date: 20180711
  Serious: Yes (Other)
  Sender: FDA-Public Use
  Company Number: US-ALSI-201800236

PATIENT
  Age: 62 Year
  Sex: Female

DRUGS (1)
  1. CARBON DIOXIDE. [Suspect]
     Active Substance: CARBON DIOXIDE
     Indication: ANGIOGRAM
     Route: 013

REACTIONS (3)
  - Off label use [Recovered/Resolved]
  - Intestinal ischaemia [Recovered/Resolved]
  - Air embolism [Recovered/Resolved]
